FAERS Safety Report 7394248-4 (Version None)
Quarter: 2011Q1

REPORT INFORMATION
  Report Type: 
  Country: None (occurrence: None)
  Receive Date: 20110324
  Receipt Date: 20110315
  Transmission Date: 20110831
  Serious: Yes (Hospitalization)
  Sender: FDA-Public Use
  Company Number: 2010SP046955

PATIENT
  Age: 58 Year
  Sex: Male
  Weight: 73 kg

DRUGS (9)
  1. CIALIS [Concomitant]
  2. PHOSPHODIESTERASE INHIBITOR [Concomitant]
  3. INIPOMP [Concomitant]
  4. RIBAVIRIN [Suspect]
     Indication: HEPATITIS C
     Dosage: 1000 MG;QD
     Dates: start: 20090513
  5. KESTIN [Concomitant]
  6. NASONEX [Concomitant]
  7. PEG-INTRON [Suspect]
     Indication: HEPATITIS C
     Dosage: 30 MCG;QW
     Dates: start: 20090513
  8. FORTIMEL [Concomitant]
  9. DEXERYL [Concomitant]

REACTIONS (4)
  - SLEEP DISORDER [None]
  - SOMNOLENCE [None]
  - PERIODIC LIMB MOVEMENT DISORDER [None]
  - SNORING [None]
